FAERS Safety Report 6852068-0 (Version None)
Quarter: 2010Q3

REPORT INFORMATION
  Report Type: 
  Country: None (occurrence: None)
  Receive Date: 20100717
  Receipt Date: 20071107
  Transmission Date: 20110219
  Serious: No
  Sender: FDA-Public Use
  Company Number: US-PFIZER INC-2007095183

PATIENT
  Age: 51 Year
  Sex: Female
  Weight: 81.8 kg

DRUGS (7)
  1. CHANTIX [Suspect]
     Indication: SMOKING CESSATION THERAPY
     Dates: start: 20070101
  2. VITAMINS [Concomitant]
  3. FLAXSEED OIL [Concomitant]
  4. HERBAL NOS/ZINC [Concomitant]
  5. FISH OIL [Concomitant]
  6. MULTIPLE VITAMIN [Concomitant]
  7. DRUG, UNSPECIFIED [Concomitant]

REACTIONS (1)
  - MEMORY IMPAIRMENT [None]
